FAERS Safety Report 21369047 (Version 1)
Quarter: 2022Q3

REPORT INFORMATION
  Report Type: Spontaneous
  Country: CN (occurrence: CN)
  Receive Date: 20220923
  Receipt Date: 20220923
  Transmission Date: 20221026
  Serious: Yes (Hospitalization)
  Sender: FDA-Public Use
  Company Number: CN-JNJFOC-20220939046

PATIENT
  Age: 3 Year
  Sex: Male

DRUGS (1)
  1. MOTRIN INFANTS [Suspect]
     Active Substance: IBUPROFEN
     Indication: Product used for unknown indication
     Dosage: 15 ML AT ONE TIME
     Route: 065

REACTIONS (4)
  - Peripheral coldness [Unknown]
  - Off label use [Unknown]
  - Somnolence [Unknown]
  - Visual impairment [Unknown]
